FAERS Safety Report 15918837 (Version 1)
Quarter: 2019Q1

REPORT INFORMATION
  Report Type: Spontaneous
  Country: NL (occurrence: NL)
  Receive Date: 20190205
  Receipt Date: 20190205
  Transmission Date: 20190417
  Serious: Yes (Other)
  Sender: FDA-Public Use
  Company Number: NL-MYLANLABS-2019M1009316

PATIENT
  Age: 38 Year
  Sex: Female
  Weight: 55 kg

DRUGS (3)
  1. QUETIAPINE. [Suspect]
     Active Substance: QUETIAPINE
     Indication: SLEEP DISORDER
  2. TRAZODONE [Concomitant]
     Active Substance: TRAZODONE HYDROCHLORIDE
     Dosage: 50 MILLIGRAM, QD (50MG/DAG)
  3. QUETIAPINE. [Suspect]
     Active Substance: QUETIAPINE
     Indication: POST-TRAUMATIC STRESS DISORDER
     Dosage: 25 MILLIGRAM, QD (25 MG PER DAG)
     Route: 048
     Dates: start: 20180329, end: 20180706

REACTIONS (4)
  - Dissociation [Recovering/Resolving]
  - Abnormal dreams [Recovering/Resolving]
  - Decreased interest [Recovering/Resolving]
  - Intentional self-injury [Recovering/Resolving]
